FAERS Safety Report 15428909 (Version 2)
Quarter: 2019Q3

REPORT INFORMATION
  Report Type: Report from Study
  Country: US (occurrence: US)
  Receive Date: 20180926
  Receipt Date: 20190730
  Transmission Date: 20191004
  Serious: No
  Sender: FDA-Public Use
  Company Number: PHHY2018US107731

PATIENT
  Sex: Male

DRUGS (4)
  1. ILARIS [Suspect]
     Active Substance: CANAKINUMAB
     Dosage: 140 MG, Q4W (EVERY 4 WEEKS)
     Route: 058
     Dates: start: 20180607
  2. ILARIS [Suspect]
     Active Substance: CANAKINUMAB
     Dosage: 150 MG, Q4W (EVERY 4 WEEKS)
     Route: 058
     Dates: start: 20180702
  3. ILARIS [Suspect]
     Active Substance: CANAKINUMAB
     Dosage: 180 MG, Q4W
     Route: 058
  4. ILARIS [Suspect]
     Active Substance: CANAKINUMAB
     Indication: CRYOPYRIN ASSOCIATED PERIODIC SYNDROME
     Dosage: 140 MG, Q4W (EVERY 4 WEEKS)
     Route: 058
     Dates: start: 20180508

REACTIONS (2)
  - Malaise [Unknown]
  - Incorrect dosage administered [Unknown]
